FAERS Safety Report 6414792-3 (Version None)
Quarter: 2010Q1

REPORT INFORMATION
  Report Type: 
  Country: None (occurrence: None)
  Receive Date: 20091026
  Receipt Date: 20091026
  Transmission Date: 20100710
  Serious: Yes (Life-Threatening)
  Sender: FDA-Public Use
  Company Number: None

PATIENT
  Age: 42 Year
  Sex: Male
  Weight: 68.0396 kg

DRUGS (3)
  1. HEPARIN [Suspect]
     Indication: DEEP VEIN THROMBOSIS
     Dosage: 12000 UNITS PER HOUR IV DRIP
     Route: 041
     Dates: start: 20091004, end: 20091005
  2. ASPIRIN [Concomitant]
  3. AGGREGNOX [Concomitant]

REACTIONS (3)
  - APALLIC SYNDROME [None]
  - HAEMORRHAGIC STROKE [None]
  - INCORRECT DRUG ADMINISTRATION RATE [None]
